FAERS Safety Report 21784932 (Version 1)
Quarter: 2022Q4

REPORT INFORMATION
  Report Type: Report from Study
  Country: US (occurrence: US)
  Receive Date: 20221227
  Receipt Date: 20221227
  Transmission Date: 20230112
  Serious: No
  Sender: FDA-Public Use
  Company Number: US-ABBVIE-4210860

PATIENT
  Sex: Female

DRUGS (1)
  1. HUMIRA [Suspect]
     Active Substance: ADALIMUMAB
     Indication: Rheumatoid arthritis
     Dosage: CITRATE FREE
     Route: 058
     Dates: start: 20221102

REACTIONS (7)
  - Fatigue [Recovering/Resolving]
  - Vomiting [Recovered/Resolved]
  - Electrocardiogram abnormal [Unknown]
  - Heart rate decreased [Unknown]
  - Diarrhoea [Recovered/Resolved]
  - Hypotension [Unknown]
  - Asthenia [Recovering/Resolving]
